FAERS Safety Report 9414327 (Version 7)
Quarter: 2014Q1

REPORT INFORMATION
  Report Type: Report from Study
  Country: DE (occurrence: DE)
  Receive Date: 20130723
  Receipt Date: 20140228
  Transmission Date: 20141002
  Serious: Yes (Hospitalization)
  Sender: FDA-Public Use
  Company Number: DE-ROCHE-1251515

PATIENT
  Age: 77 Year
  Sex: Female
  Weight: 53 kg

DRUGS (13)
  1. TOCILIZUMAB [Suspect]
     Indication: RHEUMATOID ARTHRITIS
     Route: 042
     Dates: start: 20120509, end: 20121010
  2. TOCILIZUMAB [Suspect]
     Route: 042
     Dates: start: 20121203
  3. TOCILIZUMAB [Suspect]
     Route: 042
     Dates: start: 20130107
  4. TOCILIZUMAB [Suspect]
     Route: 042
     Dates: start: 20130211
  5. TOCILIZUMAB [Suspect]
     Route: 042
     Dates: start: 20130311
  6. TOCILIZUMAB [Suspect]
     Route: 042
     Dates: start: 20130408, end: 20130408
  7. TOCILIZUMAB [Suspect]
     Route: 042
     Dates: start: 20130808
  8. TOCILIZUMAB [Suspect]
     Route: 042
     Dates: start: 20121107
  9. METAMIZOLE [Concomitant]
  10. PREDNISOLON [Concomitant]
     Route: 048
     Dates: start: 20120509, end: 20120606
  11. PREDNISOLON [Concomitant]
     Route: 048
     Dates: start: 20120606, end: 20130716
  12. PREDNISOLON [Concomitant]
     Route: 048
     Dates: start: 20130716
  13. TOLPERISONE [Concomitant]
     Route: 048

REACTIONS (3)
  - Perinephric abscess [Recovered/Resolved]
  - Hepatic cirrhosis [Recovered/Resolved]
  - Transient ischaemic attack [Unknown]
